FAERS Safety Report 6674017-0 (Version None)
Quarter: 2010Q2

REPORT INFORMATION
  Report Type: 
  Country: None (occurrence: None)
  Receive Date: 20100409
  Receipt Date: 20100406
  Transmission Date: 20101027
  Serious: Yes (Hospitalization)
  Sender: FDA-Public Use
  Company Number: FR-WYE-G05897810

PATIENT
  Sex: Male

DRUGS (6)
  1. IBUPROFEN (ADVIL) [Suspect]
     Indication: TOOTH ABSCESS
     Dosage: UNKNOWN
     Route: 048
     Dates: start: 20100306, end: 20100308
  2. AMOXICILLIN [Suspect]
     Indication: TOOTH ABSCESS
     Dosage: UNKNOWN
     Route: 048
     Dates: start: 20100308, end: 20100308
  3. PRONTALGINE [Suspect]
     Indication: TOOTH ABSCESS
     Dosage: ONE SINGLE INTAKE
     Route: 048
     Dates: start: 20100308, end: 20100308
  4. ACETAMINOPHEN [Suspect]
     Indication: TOOTH ABSCESS
     Dosage: UNKNOWN
     Route: 048
     Dates: start: 20100306, end: 20100307
  5. ACETAMINOPHEN AND CODEINE PHOSPHATE [Suspect]
     Indication: TOOTH ABSCESS
     Dosage: UNKNOWN
     Route: 048
     Dates: start: 20100306, end: 20100307
  6. IBUPROFEN [Suspect]
     Indication: TOOTH ABSCESS
     Dosage: UNKNOWN
     Route: 048
     Dates: start: 20100308, end: 20100308

REACTIONS (9)
  - DYSPNOEA [None]
  - ERYTHEMA [None]
  - EXPIRED DRUG ADMINISTERED [None]
  - FACE OEDEMA [None]
  - LIP OEDEMA [None]
  - PALATAL OEDEMA [None]
  - RASH PAPULAR [None]
  - SWELLING FACE [None]
  - URTICARIA [None]
